FAERS Safety Report 21546748 (Version 2)
Quarter: 2022Q4

REPORT INFORMATION
  Report Type: Spontaneous
  Country: US (occurrence: US)
  Receive Date: 20221103
  Receipt Date: 20221220
  Transmission Date: 20230113
  Serious: Yes (Other)
  Sender: FDA-Public Use
  Company Number: US-BRISTOL-MYERS SQUIBB COMPANY-2022-131306

PATIENT
  Age: 87 Year
  Sex: Female
  Weight: 78 kg

DRUGS (24)
  1. REVLIMID [Suspect]
     Active Substance: LENALIDOMIDE
     Indication: Plasma cell myeloma
     Dosage: 10 MG, 14D ON 7D OFF
     Route: 048
     Dates: start: 20220923
  2. ACETAMINOPHEN [Concomitant]
     Active Substance: ACETAMINOPHEN
     Indication: Product used for unknown indication
     Dosage: FREQUENCY: TAKE 500 MG BY MOUTH AT BEDTIME.?MAX ACETAMINOPHEN DOSE 4000MG IN 24HRS.
     Route: 048
  3. ACETAMINOPHEN [Concomitant]
     Active Substance: ACETAMINOPHEN
     Dosage: FREQUENCY: EVERY 6HR IF NEEDED (PAIN)
     Route: 048
  4. ACYCLOVIR [Concomitant]
     Active Substance: ACYCLOVIR
     Indication: Product used for unknown indication
     Dosage: TAKE 1 TABLET (400MG) BY MOUTH 2 TIMES DAILY
     Route: 048
  5. ALBUTEROL SULFATE [Concomitant]
     Active Substance: ALBUTEROL SULFATE
     Indication: Product used for unknown indication
     Dosage: DOSE : 90MCG, FREQUENCY : INHALE 1-2 PUFFS BY MOUTH EVERY 4 HOURS IF NEEDED FOR SHORTNESS OF BREATH
     Route: 048
  6. CARBOXYMETHYLCELLULOSE [Concomitant]
     Active Substance: CARBOXYMETHYLCELLULOSE
     Indication: Product used for unknown indication
     Dosage: 0.25%, PLACE ONE DROP IN TO THE EYE EACH TIME IF NEEDED (DRY EYES).
  7. CHOLECALCIFEROL [Concomitant]
     Active Substance: CHOLECALCIFEROL
     Indication: Product used for unknown indication
     Dosage: DOSE : 1250MCG, VITAMIN D3, 50,000 INTERNATIONAL UNIT WEEKLY X8 FOLLOWED BY MAINTENANCE ?VITAMIN D3,
     Route: 048
  8. CYANOCOBALAMIN [Concomitant]
     Active Substance: CYANOCOBALAMIN
     Indication: Product used for unknown indication
     Dosage: FREQUENCY : 1000 MCG, INJECT 1 ML (1000MCG) INTRAMUSCULARLY EVERY 4 WEEKS
  9. CYANOCOBALAMIN [Concomitant]
     Active Substance: CYANOCOBALAMIN
     Route: 030
     Dates: start: 20221110, end: 20221207
  10. DAPSONE [Concomitant]
     Active Substance: DAPSONE
     Indication: Product used for unknown indication
     Route: 048
     Dates: start: 20220923
  11. DEXAMETHASONE [Concomitant]
     Active Substance: DEXAMETHASONE
     Indication: Product used for unknown indication
     Dosage: TAKE 5 TABLETS (20 MG) BY MOUTH ONCE DAILY WITH A MEAL. TAKE ON DAYS 1, 8, 15 OF EACH 21 DAY CYCLE
     Dates: start: 20220923
  12. LEXAPRO [Concomitant]
     Active Substance: ESCITALOPRAM OXALATE
     Indication: Product used for unknown indication
     Dosage: TAKE 1.5 TABLETS BY MOUTH EVERYDAY
  13. ADVAIR HFA [Concomitant]
     Active Substance: FLUTICASONE PROPIONATE\SALMETEROL XINAFOATE
     Indication: Product used for unknown indication
     Dosage: 500-50 MCG. INHALE 1 PUFF BY MOUTH TWO TIMES DAILY
  14. HYDROCORTISONE [Concomitant]
     Active Substance: HYDROCORTISONE
     Indication: Product used for unknown indication
     Dosage: 1% APPLY TOPICALLY TO AFFECTED AREA(S) 4 TIMES DAILY IF NEEDED FOR ITCHING (HEMORRHOIDS).
  15. ATARAX [Concomitant]
     Active Substance: HYDROXYZINE HYDROCHLORIDE
     Indication: Product used for unknown indication
     Dosage: TAKE 1 TABLET (25 MG) BY MOUTH 4 TIMES DAILY IF NEEDED FOR ITCHING.
  16. COZAAR [Concomitant]
     Active Substance: LOSARTAN POTASSIUM
     Indication: Product used for unknown indication
     Dosage: TAKE 1 TABLET (25 MG) BY MOUTH ONCE DAILY.
  17. ANTIVERT [Concomitant]
     Active Substance: MECLIZINE HYDROCHLORIDE
     Indication: Product used for unknown indication
     Dosage: TAKE 1 TABLET (25 MG) BY MOUTH 3 TIMES DAILY IF NEEDED FOR VERTIGO.
  18. PRILOSEC [Concomitant]
     Active Substance: OMEPRAZOLE MAGNESIUM
     Indication: Product used for unknown indication
     Dosage: TAKE 1 CAPSULE (20 MG) BY MOUTH ONCE DAILY BEFORE A MEAL.
  19. ZOFRAN [Concomitant]
     Active Substance: ONDANSETRON HYDROCHLORIDE
     Indication: Product used for unknown indication
     Dosage: TAKE 1 TABLET (8 MG) BY MOUTH EVERY 8 HOURS IF NEEDED FOR NAUSEA/VOMITING.
  20. OXYGEN [Concomitant]
     Active Substance: OXYGEN
     Indication: Product used for unknown indication
     Dosage: OXYGEN FOR HOME USE. LITERS PER ?MINUTE: 1 PER NASAL CANNULA. ?FREQUENCY OF USE: WITH ACTIVITY; ?LEN
  21. OMEPRAZOLE [Concomitant]
     Active Substance: OMEPRAZOLE
     Indication: Product used for unknown indication
     Dosage: TAKE 1 TABLET (40 MG) BY MOUTH ?ONCE DAILY.
     Route: 048
     Dates: start: 20220914
  22. DELTASONE [Concomitant]
     Active Substance: PREDNISONE
     Indication: Product used for unknown indication
     Dosage: TAKE 1 TABLET (20 MG) BY MOUTH ?ONCE DAILY WITH A MEAL.
     Dates: start: 20220815
  23. SENNA LEAF [Concomitant]
     Active Substance: SENNA LEAF
     Indication: Product used for unknown indication
     Dosage: TAKE 1 TABLET (8.6 MG) BY MOUTH TWO ?TIMES DAILY.
  24. ADSORBONAC [Concomitant]
     Indication: Product used for unknown indication
     Dosage: 2% PLACE 1 DROP INTO BOTH EYES EVERY 4 HOURS IF NEEDED FOR DRY EYES.

REACTIONS (4)
  - Rash [Recovered/Resolved]
  - Off label use [Unknown]
  - Syncope [Unknown]
  - Constipation [Unknown]

NARRATIVE: CASE EVENT DATE: 20221031
